FAERS Safety Report 10880780 (Version 1)
Quarter: 2015Q1

REPORT INFORMATION
  Report Type: Spontaneous
  Country: US (occurrence: US)
  Receive Date: 20150303
  Receipt Date: 20150303
  Transmission Date: 20150721
  Serious: No
  Sender: FDA-Public Use
  Company Number: US-BIOGENIDEC-2015BI013478

PATIENT
  Age: 51 Year
  Sex: Female

DRUGS (1)
  1. TECFIDERA [Suspect]
     Active Substance: DIMETHYL FUMARATE
     Indication: RELAPSING-REMITTING MULTIPLE SCLEROSIS
     Route: 048
     Dates: start: 20141111

REACTIONS (7)
  - Thyroid disorder [Unknown]
  - Vitamin B12 deficiency [Unknown]
  - Nausea [Not Recovered/Not Resolved]
  - Prophylaxis urinary tract infection [Unknown]
  - Feeling jittery [Unknown]
  - Gastrooesophageal reflux disease [Unknown]
  - Emotional disorder [Unknown]

NARRATIVE: CASE EVENT DATE: 201412
